FAERS Safety Report 8606590 (Version 2)
Quarter: 2015Q1

REPORT INFORMATION
  Report Type: Spontaneous
  Country: US (occurrence: US)
  Receive Date: 20120608
  Receipt Date: 20150103
  Transmission Date: 20150721
  Serious: No
  Sender: FDA-Public Use
  Company Number: US-ASTRAZENECA-2011SE37259

PATIENT
  Sex: Female

DRUGS (2)
  1. RHINOCORT AQUA [Suspect]
     Active Substance: BUDESONIDE
     Route: 045
  2. PULMICORT TURBUHALER [Suspect]
     Active Substance: BUDESONIDE
     Route: 055

REACTIONS (5)
  - Intervertebral disc protrusion [Unknown]
  - Fatigue [Unknown]
  - Amnesia [Unknown]
  - Multiple chemical sensitivity [Unknown]
  - Fibromyalgia [Unknown]
